FAERS Safety Report 12528659 (Version 2)
Quarter: 2017Q2

REPORT INFORMATION
  Report Type: Report from Study
  Country: SE (occurrence: SE)
  Receive Date: 20160705
  Receipt Date: 20170526
  Transmission Date: 20170830
  Serious: Yes (Death, Other)
  Sender: FDA-Public Use
  Company Number: SE-CELGENEUS-SWE-2016065570

PATIENT

DRUGS (2)
  1. DEXAMETHASONE. [Concomitant]
     Active Substance: DEXAMETHASONE
     Indication: PLASMA CELL MYELOMA
     Dosage: 40 MILLIGRAM
     Route: 048
  2. REVLIMID [Suspect]
     Active Substance: LENALIDOMIDE
     Indication: PLASMA CELL MYELOMA
     Dosage: 25 MILLIGRAM
     Route: 048

REACTIONS (26)
  - Neutropenia [Unknown]
  - Anaemia [Unknown]
  - Lung neoplasm malignant [Fatal]
  - Febrile neutropenia [Unknown]
  - Upper respiratory tract infection [Unknown]
  - Thrombocytopenia [Unknown]
  - Pancreatic carcinoma [Unknown]
  - Pulmonary embolism [Unknown]
  - Plasma cell myeloma [Fatal]
  - Pneumonia [Fatal]
  - Herpes zoster [Unknown]
  - Sepsis [Fatal]
  - Deep vein thrombosis [Unknown]
  - Cataract [Unknown]
  - Nausea [Unknown]
  - Basal cell carcinoma [Unknown]
  - Fatigue [Unknown]
  - Diffuse large B-cell lymphoma [Unknown]
  - Constipation [Unknown]
  - Gastrointestinal carcinoma [Unknown]
  - Sudden death [Fatal]
  - Acute myeloid leukaemia [Unknown]
  - Diarrhoea [Unknown]
  - Back pain [Unknown]
  - Urinary tract infection [Unknown]
  - Cough [Unknown]
